FAERS Safety Report 8575549-0 (Version None)
Quarter: 2012Q3

REPORT INFORMATION
  Report Type: 
  Country: None (occurrence: None)
  Receive Date: 20120807
  Receipt Date: 20120802
  Transmission Date: 20120928
  Serious: Yes (Hospitalization)
  Sender: FDA-Public Use
  Company Number: ES-ELI_LILLY_AND_COMPANY-ES201201004195

PATIENT
  Sex: Female
  Weight: 65 kg

DRUGS (5)
  1. EPROSARTAN MESYLATE [Concomitant]
     Indication: HYPERTENSION
     Dosage: 1 DF, QD
     Route: 048
  2. FORTEO [Suspect]
     Indication: OSTEOPOROSIS
     Dosage: 20 UG, QD
     Route: 058
     Dates: start: 20110627
  3. VOLTAREN [Concomitant]
     Indication: ANALGESIC THERAPY
     Dosage: 1 DF, BID
     Route: 048
  4. SIMVASTATIN [Concomitant]
     Indication: BLOOD CHOLESTEROL
     Dosage: 1 DF, QD
  5. LORAZEPAM [Concomitant]
     Indication: POOR QUALITY SLEEP
     Dosage: 1 DF, QD

REACTIONS (3)
  - PAIN [None]
  - FALL [None]
  - SPINAL FRACTURE [None]
